FAERS Safety Report 22886180 (Version 4)
Quarter: 2024Q3

REPORT INFORMATION
  Report Type: Report from Study
  Country: US (occurrence: US)
  Receive Date: 20230831
  Receipt Date: 20240720
  Transmission Date: 20241016
  Serious: Yes (Hospitalization)
  Sender: JAZZ
  Company Number: US-JAZZ PHARMACEUTICALS-2023-US-018198

PATIENT
  Age: 17 Year
  Sex: Male
  Weight: 29 kg

DRUGS (3)
  1. EPIDIOLEX [Suspect]
     Active Substance: CANNABIDIOL
     Indication: Lennox-Gastaut syndrome
     Dosage: TAKE 7 ML EVERY MORNING AND 8 ML EVERY EVENING
     Route: 048
  2. ONFI [Suspect]
     Active Substance: CLOBAZAM
     Indication: Product used for unknown indication
  3. RISPERIDONE [Concomitant]
     Active Substance: RISPERIDONE
     Dosage: UNK

REACTIONS (9)
  - Hospitalisation [Recovering/Resolving]
  - Hospitalisation [Unknown]
  - Drooling [Not Recovered/Not Resolved]
  - Balance disorder [Not Recovered/Not Resolved]
  - Drug interaction [Not Recovered/Not Resolved]
  - Dysphagia [Not Recovered/Not Resolved]
  - Blood glucose decreased [Unknown]
  - Feeling abnormal [Unknown]
  - Intentional product use issue [Unknown]

NARRATIVE: CASE EVENT DATE: 20240715
